FAERS Safety Report 25412590 (Version 1)
Quarter: 2025Q2

REPORT INFORMATION
  Report Type: Spontaneous
  Country: CN (occurrence: CN)
  Receive Date: 20250609
  Receipt Date: 20250609
  Transmission Date: 20250717
  Serious: Yes (Hospitalization, Other)
  Sender: PFIZER
  Company Number: CN-PFIZER INC-202500114315

PATIENT
  Age: 50 Year
  Sex: Male

DRUGS (2)
  1. LORBRENA [Suspect]
     Active Substance: LORLATINIB
     Dosage: 100 MG QD
     Route: 048
     Dates: start: 202501
  2. LORBRENA [Suspect]
     Active Substance: LORLATINIB
     Route: 048
     Dates: end: 202505

REACTIONS (6)
  - Hallucination [Unknown]
  - Musculoskeletal stiffness [Unknown]
  - Mobility decreased [Unknown]
  - Speech disorder [Unknown]
  - Formication [Unknown]
  - Off label use [Unknown]

NARRATIVE: CASE EVENT DATE: 20250101
